FAERS Safety Report 25998017 (Version 1)
Quarter: 2025Q4

REPORT INFORMATION
  Report Type: Report from Study
  Country: US (occurrence: US)
  Receive Date: 20251105
  Receipt Date: 20251105
  Transmission Date: 20260118
  Serious: Yes (Hospitalization, Other)
  Sender: CELLTRION
  Company Number: US-CELLTRION INC.-2025US020786

PATIENT

DRUGS (1)
  1. INFLIXIMAB-DYYB [Suspect]
     Active Substance: INFLIXIMAB-DYYB
     Indication: Product used for unknown indication
     Dosage: 120 MILLIGRAM PER MILLILITRE; PEN KIT  INJECT THE CONTENTS OF ONE DEVICE UNDER THE SKIN EVERY TWO WE
     Route: 058

REACTIONS (2)
  - Diverticulitis [Unknown]
  - Diarrhoea [Unknown]
